FAERS Safety Report 7494300-9 (Version None)
Quarter: 2011Q2

REPORT INFORMATION
  Report Type: 
  Country: None (occurrence: None)
  Receive Date: 20110520
  Receipt Date: 20110510
  Transmission Date: 20111010
  Serious: Yes (Death, Hospitalization, Other)
  Sender: FDA-Public Use
  Company Number: US-ACTELION-A-US2011-46468

PATIENT

DRUGS (7)
  1. TRACLEER [Suspect]
     Indication: PULMONARY ARTERIAL HYPERTENSION
     Dosage: 62.5 MG, BID
     Route: 048
     Dates: start: 20060501, end: 20110303
  2. PREDNISONE [Concomitant]
  3. SPIRONOLACTONE [Concomitant]
  4. CALCIUM CHANNEL BLOCKERS [Concomitant]
  5. HYDROCHLOROTHIAZIDE [Concomitant]
  6. ENALAPRIL MALEATE [Concomitant]
  7. NORVASC [Concomitant]

REACTIONS (12)
  - GASTROINTESTINAL HAEMORRHAGE [None]
  - HEPATIC ENCEPHALOPATHY [None]
  - SEPSIS [None]
  - HYPOTENSION [None]
  - DIARRHOEA [None]
  - LIVER FUNCTION TEST ABNORMAL [None]
  - RESPIRATORY DISTRESS [None]
  - PANNICULITIS [None]
  - PROTEINURIA [None]
  - ACUTE RESPIRATORY FAILURE [None]
  - BLOOD CREATINE PHOSPHOKINASE INCREASED [None]
  - NAUSEA [None]
